FAERS Safety Report 7487556-X (Version None)
Quarter: 2011Q2

REPORT INFORMATION
  Report Type: 
  Country: None (occurrence: None)
  Receive Date: 20110518
  Receipt Date: 20110509
  Transmission Date: 20111010
  Serious: Yes (Death)
  Sender: FDA-Public Use
  Company Number: FR-BRISTOL-MYERS SQUIBB COMPANY-15737091

PATIENT
  Age: 59 Year
  Sex: Male

DRUGS (3)
  1. CETUXIMAB [Suspect]
     Indication: HEAD AND NECK CANCER
     Dosage: RECENT INFUSION PRIOR TO ONSET ON: 07-JUN-2010.
     Route: 042
     Dates: start: 20100419, end: 20100607
  2. CARBOPLATIN [Suspect]
     Indication: HEAD AND NECK CANCER
     Dosage: RECENT INFUSION PRIOR TO ONSET ON: 10-JUN-2010.
     Route: 042
     Dates: start: 20100426, end: 20100610
  3. FLUOROURACIL [Suspect]
     Indication: HEAD AND NECK CANCER
     Dosage: RECENT INFUSION PRIOR TO ONSET ON: 10-JUN-2010.
     Route: 042
     Dates: start: 20100426, end: 20100610

REACTIONS (3)
  - STAPHYLOCOCCAL SEPSIS [None]
  - FEBRILE NEUTROPENIA [None]
  - SHOCK [None]
